FAERS Safety Report 8028400-1 (Version None)
Quarter: 2012Q1

REPORT INFORMATION
  Report Type: 
  Country: None (occurrence: None)
  Receive Date: 20120104
  Receipt Date: 20111223
  Transmission Date: 20120608
  Serious: Yes (Other)
  Sender: FDA-Public Use
  Company Number: 2010SP033443

PATIENT
  Age: 44 Year
  Sex: Male
  Weight: 53 kg

DRUGS (7)
  1. TEMODAL [Suspect]
     Indication: GLIOBLASTOMA
     Dosage: 140 MG;QD;PO 200 MG;QD;PO 250 MG;QD;PO
     Route: 048
     Dates: start: 20090105, end: 20090109
  2. TEMODAL [Suspect]
     Indication: GLIOBLASTOMA
     Dosage: 140 MG;QD;PO 200 MG;QD;PO 250 MG;QD;PO
     Route: 048
     Dates: start: 20090428, end: 20090502
  3. TEMODAL [Suspect]
     Indication: GLIOBLASTOMA
     Dosage: 140 MG;QD;PO 200 MG;QD;PO 250 MG;QD;PO
     Route: 048
     Dates: start: 20081031, end: 20081105
  4. TEMODAL [Suspect]
     Indication: GLIOBLASTOMA
     Dosage: 140 MG;QD;PO 200 MG;QD;PO 250 MG;QD;PO
     Route: 048
     Dates: start: 20081202, end: 20081207
  5. TEMODAL [Suspect]
     Indication: GLIOBLASTOMA
     Dosage: 140 MG;QD;PO 200 MG;QD;PO 250 MG;QD;PO
     Route: 048
     Dates: start: 20090304, end: 20090308
  6. TEMODAL [Suspect]
     Indication: GLIOBLASTOMA
     Dosage: 140 MG;QD;PO 200 MG;QD;PO 250 MG;QD;PO
     Route: 048
     Dates: start: 20090401, end: 20090405
  7. TEMODAL [Suspect]
     Indication: GLIOBLASTOMA
     Dosage: 140 MG;QD;PO 200 MG;QD;PO 250 MG;QD;PO
     Route: 048
     Dates: start: 20080703, end: 20080814

REACTIONS (4)
  - PNEUMONIA [None]
  - HAEMOGLOBIN DECREASED [None]
  - LUNG CONSOLIDATION [None]
  - NEUTROPENIA [None]
